FAERS Safety Report 10719402 (Version 1)
Quarter: 2015Q1

REPORT INFORMATION
  Report Type: Spontaneous
  Country: US (occurrence: US)
  Receive Date: 20150119
  Receipt Date: 20150119
  Transmission Date: 20150721
  Serious: No
  Sender: FDA-Public Use
  Company Number: US-UNITED THERAPEUTICS-UNT-2014-010239

PATIENT
  Age: 19 Year
  Sex: Male

DRUGS (1)
  1. ORENITRAM [Suspect]
     Active Substance: TREPROSTINIL
     Indication: PULMONARY HYPERTENSION
     Dosage: 2.875 MG, TID
     Route: 048
     Dates: start: 20141006

REACTIONS (2)
  - Pain in jaw [Unknown]
  - Migraine [Unknown]

NARRATIVE: CASE EVENT DATE: 20141017
